FAERS Safety Report 24633883 (Version 2)
Quarter: 2024Q4

REPORT INFORMATION
  Report Type: Spontaneous
  Country: PL (occurrence: PL)
  Receive Date: 20241118
  Receipt Date: 20241128
  Transmission Date: 20250115
  Serious: Yes (Hospitalization)
  Sender: SANDOZ
  Company Number: PL-ROCHE-3412869

PATIENT
  Age: 66 Year
  Sex: Female
  Weight: 48 kg

DRUGS (23)
  1. CYCLOPHOSPHAMIDE [Suspect]
     Active Substance: CYCLOPHOSPHAMIDE
     Indication: Diffuse large B-cell lymphoma
     Dosage: 375 MG/M2, START DATE OF MOST RECENT DOSE OF STUDY DRUG PRIOR TO SAE 10-AUG-2023
     Route: 042
  2. DOXORUBICIN HYDROCHLORIDE [Suspect]
     Active Substance: DOXORUBICIN HYDROCHLORIDE
     Indication: Diffuse large B-cell lymphoma
     Dosage: 1116.57 MG/M2
     Route: 042
     Dates: start: 20230810
  3. DOXORUBICIN HYDROCHLORIDE [Suspect]
     Active Substance: DOXORUBICIN HYDROCHLORIDE
     Dosage: 750 MG/M2, START DATE OF MOST RECENT DOSE OF STUDY DRUG PRIOR TO SAE 10-AUG-2023
     Route: 042
  4. METHYLPREDNISOLONE [Suspect]
     Active Substance: METHYLPREDNISOLONE
     Indication: Diffuse large B-cell lymphoma
     Dosage: 2 MG, START DATE AND END DATE OF MOST RECENT DOSE OF STUDY DRUG PRIOR TO SAE 10-AUG-2023
     Route: 042
     Dates: start: 20230810
  5. PREDNISONE [Suspect]
     Active Substance: PREDNISONE
     Indication: Diffuse large B-cell lymphoma
     Dosage: 74.44 MG/M2
     Route: 042
     Dates: start: 20230810
  6. PREDNISONE [Suspect]
     Active Substance: PREDNISONE
     Dosage: 750 MG/M2, START DATE OF MOST RECENT DOSE OF STUDY DRUG PRIOR TO SAE 10-AUG-2023
     Route: 042
  7. RITUXIMAB [Suspect]
     Active Substance: RITUXIMAB
     Indication: Diffuse large B-cell lymphoma
     Dosage: 558.29 MG/M2
     Route: 042
     Dates: start: 20230810
  8. VINCRISTINE [Suspect]
     Active Substance: VINCRISTINE
     Indication: Diffuse large B-cell lymphoma
     Dosage: 100 MG, START DATE AND END DATE OF MOST RECENT DOSE OF STUDY DRUG PRIOR TO SAE 14-AUG-2023
     Route: 042
     Dates: start: 20230810
  9. AMLODIPINE BESYLATE [Concomitant]
     Active Substance: AMLODIPINE BESYLATE
     Indication: Hypertension
     Dosage: 5 MG
     Route: 048
     Dates: start: 20230802
  10. AMOXICILLIN [Concomitant]
     Active Substance: AMOXICILLIN
     Indication: Chronic gastritis
     Dosage: 1000 MG
     Route: 048
     Dates: start: 20230801
  11. CONTROLOC [Concomitant]
     Active Substance: PANTOPRAZOLE SODIUM
     Indication: Chronic gastritis
     Dosage: UNK
     Route: 065
  12. PREDNISONE [Concomitant]
     Active Substance: PREDNISONE
     Indication: Product used for unknown indication
     Dosage: UNK
     Route: 065
  13. Glibetic [Concomitant]
     Indication: Type 2 diabetes mellitus
     Dosage: 40 MG
     Route: 048
     Dates: start: 202304
  14. Glibetic [Concomitant]
     Dosage: UNK
     Route: 048
     Dates: start: 2015
  15. INSULINA ACTRAPID [Concomitant]
     Indication: Abdominal pain
     Dosage: UNK
     Route: 065
  16. CLARITHROMYCIN [Concomitant]
     Active Substance: CLARITHROMYCIN
     Indication: Chronic gastritis
     Dosage: 500 MG
     Route: 048
     Dates: start: 20230801
  17. METRONIDAZOLE [Concomitant]
     Active Substance: METRONIDAZOLE
     Indication: Product used for unknown indication
     Dosage: 500 MG
     Route: 048
     Dates: start: 20230801
  18. SODIUM CHLORIDE [Concomitant]
     Active Substance: SODIUM CHLORIDE
     Indication: Product used for unknown indication
     Dosage: 1000 ML
     Route: 042
     Dates: start: 20240729
  19. PERFALGAN [Concomitant]
     Active Substance: ACETAMINOPHEN
     Indication: Chronic gastritis
     Dosage: UNK
     Route: 065
  20. ROSUVASTATIN [Concomitant]
     Active Substance: ROSUVASTATIN
     Indication: Hypertriglyceridaemia
     Dosage: 5 MG
     Route: 048
     Dates: start: 20230802
  21. METFORMIN HYDROCHLORIDE [Concomitant]
     Active Substance: METFORMIN HYDROCHLORIDE
     Indication: Type 2 diabetes mellitus
     Dosage: UNK
     Route: 065
  22. TELMISARTAN [Concomitant]
     Active Substance: TELMISARTAN
     Indication: Hypertension
     Dosage: 80 MG
     Route: 048
     Dates: start: 20230802
  23. BUPRENORPHINE [Concomitant]
     Active Substance: BUPRENORPHINE
     Indication: Type 2 diabetes mellitus
     Dosage: UNK
     Route: 065

REACTIONS (1)
  - Wound abscess [Not Recovered/Not Resolved]

NARRATIVE: CASE EVENT DATE: 20230825
